FAERS Safety Report 10617473 (Version 1)
Quarter: 2014Q4

REPORT INFORMATION
  Report Type: Spontaneous
  Country: US (occurrence: US)
  Receive Date: 20141201
  Receipt Date: 20141201
  Transmission Date: 20150529
  Serious: Yes (Other)
  Sender: FDA-Public Use
  Company Number: PHHY2014US152474

PATIENT
  Age: 44 Year
  Sex: Female

DRUGS (2)
  1. MUPIROCIN. [Suspect]
     Active Substance: MUPIROCIN
     Indication: CELLULITIS
     Route: 065
  2. SULFAMETHOXAZOLE AND TRIMETHOPRIM [Concomitant]
     Active Substance: SULFAMETHOXAZOLE\TRIMETHOPRIM
     Indication: CELLULITIS
     Route: 065

REACTIONS (10)
  - Skin warm [Recovered/Resolved]
  - Skin burning sensation [Recovered/Resolved]
  - Urticaria [Recovering/Resolving]
  - Skin lesion [Recovered/Resolved]
  - Erythema [Recovered/Resolved]
  - Joint swelling [Recovering/Resolving]
  - Serum sickness [Unknown]
  - Arthralgia [Recovering/Resolving]
  - Pallor [Recovered/Resolved]
  - Pyrexia [Recovering/Resolving]
